FAERS Safety Report 17371006 (Version 1)
Quarter: 2020Q1

REPORT INFORMATION
  Report Type: Spontaneous
  Country: US (occurrence: US)
  Receive Date: 20200205
  Receipt Date: 20200205
  Transmission Date: 20200409
  Serious: No
  Sender: FDA-Public Use
  Company Number: US-AUROBINDO-AUR-APL-2019-107428

PATIENT
  Age: 14 Year
  Sex: Male
  Weight: 81 kg

DRUGS (2)
  1. VITAMIN D [Concomitant]
     Active Substance: VITAMIN D NOS
     Indication: PRODUCT USED FOR UNKNOWN INDICATION
     Dosage: UNK
     Route: 065
  2. RANITIDINE 150 MG CAPSULES [Suspect]
     Active Substance: RANITIDINE
     Indication: HYPERSENSITIVITY
     Dosage: 2 DOSAGE FORM, ONCE A DAY
     Route: 048
     Dates: start: 20191105

REACTIONS (2)
  - Paraesthesia oral [Recovered/Resolved]
  - Product use in unapproved indication [Unknown]
